FAERS Safety Report 11847934 (Version 9)
Quarter: 2017Q1

REPORT INFORMATION
  Report Type: Report from Study
  Country: AT (occurrence: AT)
  Receive Date: 20151217
  Receipt Date: 20170214
  Transmission Date: 20170428
  Serious: Yes (Death, Hospitalization, Other)
  Sender: FDA-Public Use
  Company Number: AT-INCYTE CORPORATION-2015IN002963

PATIENT
  Age: 75 Year
  Sex: Female

DRUGS (18)
  1. THROMBOREDUCTIN [Concomitant]
     Indication: PRODUCT USED FOR UNKNOWN INDICATION
     Dosage: UNK
     Route: 065
  2. JAKAVI [Suspect]
     Active Substance: RUXOLITINIB
     Indication: MYELOFIBROSIS
     Dosage: 15 MG, BID
     Route: 048
     Dates: start: 20150307, end: 20151222
  3. VIROPEL [Concomitant]
     Indication: PRODUCT USED FOR UNKNOWN INDICATION
     Dosage: 500 MG, QD (0-0-1)
     Route: 065
  4. JAKAVI [Suspect]
     Active Substance: RUXOLITINIB
     Indication: MYELOFIBROSIS
  5. ASPIRIN. [Concomitant]
     Active Substance: ASPIRIN
     Indication: PRODUCT USED FOR UNKNOWN INDICATION
     Dosage: UNK
     Route: 065
  6. PANTOLOC//PANTOPRAZOLE SODIUM SESQUIHYDRATE [Concomitant]
     Active Substance: PANTOPRAZOLE SODIUM
     Indication: PRODUCT USED FOR UNKNOWN INDICATION
     Dosage: 40 MG, QD (1-0-0)
     Route: 065
  7. EXJADE [Concomitant]
     Active Substance: DEFERASIROX
     Indication: PRODUCT USED FOR UNKNOWN INDICATION
     Dosage: 500 MG, QD (1-0-0)
     Route: 065
  8. UROSIN [Concomitant]
     Active Substance: ALLOPURINOL
     Indication: PRODUCT USED FOR UNKNOWN INDICATION
     Dosage: 300 MG, (0-0-1/2)
     Route: 065
  9. UROSIN [Concomitant]
     Active Substance: ALLOPURINOL
     Dosage: 150 MG, QD
  10. UROSIN [Concomitant]
     Active Substance: ALLOPURINOL
     Dosage: 150 MG, QD
  11. NOVALGIN [Concomitant]
     Active Substance: METAMIZOLE SODIUM
     Indication: PRODUCT USED FOR UNKNOWN INDICATION
     Dosage: 3 DF, PRN
     Route: 065
  12. UROSIN [Concomitant]
     Active Substance: ALLOPURINOL
     Dosage: 150 MG, QD
  13. UROSIN [Concomitant]
     Active Substance: ALLOPURINOL
     Dosage: 150 MG, QD
  14. UROSIN [Concomitant]
     Active Substance: ALLOPURINOL
     Dosage: 150 MG, QD
  15. UROSIN [Concomitant]
     Active Substance: ALLOPURINOL
     Dosage: 150 MG, QD
  16. VIROPEL [Concomitant]
     Dosage: 500 MG, QHS (0-0-1)
  17. UROSIN [Concomitant]
     Active Substance: ALLOPURINOL
     Dosage: 150 MG, QD
  18. VIROPEL [Concomitant]
     Dosage: 500 MG, QHS (0-0-1)

REACTIONS (28)
  - Multiple organ dysfunction syndrome [Fatal]
  - White blood cell count decreased [Unknown]
  - Mycobacterial infection [Not Recovered/Not Resolved]
  - Nephropathy [Unknown]
  - Haematocrit decreased [Unknown]
  - Anaemia [Unknown]
  - Thrombocytopenia [Unknown]
  - Lymphadenitis [Recovered/Resolved]
  - Blood chloride decreased [Unknown]
  - Essential hypertension [Unknown]
  - Pyrexia [Recovered/Resolved]
  - Spinal cord abscess [Fatal]
  - Sepsis [Fatal]
  - Abscess neck [Unknown]
  - Blood albumin decreased [Unknown]
  - Blood uric acid increased [Unknown]
  - Cervical myelopathy [Not Recovered/Not Resolved]
  - Blood triglycerides increased [Unknown]
  - Blood glucose increased [Unknown]
  - Abscess [Recovered/Resolved]
  - Blood glucose decreased [Unknown]
  - Red cell distribution width increased [Unknown]
  - Epistaxis [Recovered/Resolved]
  - Blood phosphorus increased [Unknown]
  - Thrombocytosis [Unknown]
  - General physical health deterioration [Fatal]
  - Haemoglobin decreased [Unknown]
  - Red blood cell count decreased [Unknown]

NARRATIVE: CASE EVENT DATE: 20150330
